FAERS Safety Report 9608967 (Version 1)
Quarter: 2013Q4

REPORT INFORMATION
  Report Type: Spontaneous
  Country: FR (occurrence: FR)
  Receive Date: 20131009
  Receipt Date: 20131009
  Transmission Date: 20140711
  Serious: Yes (Hospitalization)
  Sender: FDA-Public Use
  Company Number: FR-PFIZER INC-2013283061

PATIENT
  Age: 66 Year
  Sex: Male

DRUGS (8)
  1. XANAX [Suspect]
     Dosage: 0.25 MG, DAILY
     Route: 048
     Dates: start: 20130705, end: 20130907
  2. IRENAT [Suspect]
     Indication: HYPERTHYROIDISM
     Dosage: 344.2 MG, 3X/DAY
     Route: 048
     Dates: start: 20130705, end: 20130907
  3. COVERSYL [Concomitant]
     Dosage: 5 MG, DAILY
  4. SOTALEX [Concomitant]
     Dosage: 80 MG, 2X/DAY
  5. CRESTOR [Concomitant]
     Dosage: 10 MG, DAILY
  6. PREVISCAN [Concomitant]
     Dosage: 1 DF, ALTERNATE DAY
  7. KALEORID [Concomitant]
     Dosage: 1 DF, DAILY
  8. CORTANCYL [Concomitant]
     Indication: HYPERTHYROIDISM
     Dosage: 60 MG DAILY
     Route: 048
     Dates: start: 20130705, end: 20130907

REACTIONS (4)
  - Drug reaction with eosinophilia and systemic symptoms [Recovering/Resolving]
  - Rash erythematous [Recovering/Resolving]
  - Eosinophilia [Recovered/Resolved]
  - Hepatocellular injury [Recovered/Resolved]
